FAERS Safety Report 8114898-7 (Version None)
Quarter: 2012Q1

REPORT INFORMATION
  Report Type: 
  Country: None (occurrence: None)
  Receive Date: 20120201
  Receipt Date: 20120120
  Transmission Date: 20120608
  Serious: Yes (Hospitalization, Other)
  Sender: FDA-Public Use
  Company Number: TPA2011A07891

PATIENT
  Age: 43 Year
  Sex: Female
  Weight: 72.5755 kg

DRUGS (5)
  1. UNK MEDICATION (OTHER MINERAL SUPPLEMENTS) [Concomitant]
  2. VITAMIN D [Concomitant]
  3. VITAMIN B12 [Concomitant]
  4. BYETTA [Concomitant]
  5. ACTOS [Suspect]
     Indication: TYPE 2 DIABETES MELLITUS
     Dosage: 30 MG, 1 IN 1 D, PER ORAL
     Route: 048
     Dates: start: 20110101, end: 20111001

REACTIONS (15)
  - ABDOMINAL DISCOMFORT [None]
  - VITAMIN B12 DECREASED [None]
  - DIZZINESS [None]
  - HYPERHIDROSIS [None]
  - VITAMIN D DECREASED [None]
  - CARDIAC FAILURE [None]
  - HEADACHE [None]
  - OEDEMA PERIPHERAL [None]
  - BLOOD IRON DECREASED [None]
  - CARDITIS [None]
  - PNEUMONITIS [None]
  - URINE ODOUR ABNORMAL [None]
  - MIGRAINE [None]
  - WEIGHT INCREASED [None]
  - CHEST PAIN [None]
